FAERS Safety Report 4785932-7 (Version None)
Quarter: 2005Q4

REPORT INFORMATION
  Report Type: 
  Country: None (occurrence: None)
  Receive Date: 20051003
  Receipt Date: 20050920
  Transmission Date: 20060501
  Serious: Yes (Hospitalization)
  Sender: FDA-Public Use
  Company Number: PHRM2005FR02510

PATIENT
  Age: 73 Year
  Sex: Female

DRUGS (4)
  1. VOLTAREN [Suspect]
     Route: 048
  2. KARDEGIC [Suspect]
     Dosage: 75 MG, QD
     Route: 048
     Dates: end: 20050719
  3. KENZEN [Suspect]
     Dosage: 75 MG, QD
     Route: 048
     Dates: end: 20050718
  4. IMOVANE [Concomitant]
     Dosage: 0.5 DF, QD
     Route: 048

REACTIONS (10)
  - ASTHENIA [None]
  - BLOOD BICARBONATE DECREASED [None]
  - BLOOD PHOSPHORUS DECREASED [None]
  - BLOOD UREA INCREASED [None]
  - DUODENAL ULCER [None]
  - HYPOKALAEMIA [None]
  - HYPONATRAEMIA [None]
  - METABOLIC ACIDOSIS [None]
  - PROTEINURIA [None]
  - RENAL TUBULAR DISORDER [None]
